FAERS Safety Report 7440920-7 (Version None)
Quarter: 2011Q2

REPORT INFORMATION
  Report Type: 
  Country: None (occurrence: None)
  Receive Date: 20110427
  Receipt Date: 20110414
  Transmission Date: 20111010
  Serious: Yes (Hospitalization)
  Sender: FDA-Public Use
  Company Number: PHHY2011FR31775

PATIENT
  Sex: Male

DRUGS (7)
  1. LASILIX [Interacting]
     Dosage: UNK
  2. PREVISCAN [Concomitant]
     Dosage: UNK
     Dates: start: 20110225, end: 20110227
  3. VOLTARENE LP [Suspect]
     Indication: ARTHRALGIA
     Dosage: 75 MG, QD
     Route: 048
     Dates: start: 20110225, end: 20110227
  4. COVERSYL [Interacting]
     Dosage: UNK
  5. CARDENSIEL [Concomitant]
     Dosage: UNK
     Dates: start: 20110225, end: 20110227
  6. PARIET [Concomitant]
     Dosage: UNK
     Dates: start: 20110225, end: 20110227
  7. ALLOPURINOL [Concomitant]
     Dosage: UNK
     Dates: start: 20110225, end: 20110227

REACTIONS (3)
  - ACUTE PULMONARY OEDEMA [None]
  - RENAL FAILURE ACUTE [None]
  - BLOOD CREATININE INCREASED [None]
